FAERS Safety Report 8607794-X (Version None)
Quarter: 2012Q3

REPORT INFORMATION
  Report Type: 
  Country: None (occurrence: None)
  Receive Date: 20120821
  Receipt Date: 20120816
  Transmission Date: 20120928
  Serious: Yes (Hospitalization)
  Sender: FDA-Public Use
  Company Number: PHEH2012US013496

PATIENT
  Sex: Female

DRUGS (6)
  1. COREG [Concomitant]
     Indication: CORONARY ARTERY DISEASE
     Dosage: 12.5 MG, BID
     Dates: start: 20110101
  2. OMEPRAZOLE [Concomitant]
     Indication: GASTROOESOPHAGEAL REFLUX DISEASE
     Dosage: 40 MG, QD
     Dates: start: 20110101
  3. TASIGNA [Suspect]
     Indication: GASTROINTESTINAL STROMAL TUMOUR
     Dosage: 400 MG, BID
     Route: 048
     Dates: start: 20120623
  4. PMS-LACTULOSE [Concomitant]
     Indication: LIVER FUNCTION TEST ABNORMAL
     Dates: start: 20110101
  5. AMLODIPINE [Concomitant]
     Indication: HYPERTENSION
     Dosage: 5 MG, QD
  6. LEVOTHYROXINE SODIUM [Concomitant]
     Indication: HYPOTHYROIDISM
     Dosage: 80 UG, QD
     Dates: start: 20110101

REACTIONS (5)
  - CONSTIPATION [None]
  - SWELLING [None]
  - DYSURIA [None]
  - RENAL FAILURE [None]
  - HYPOTENSION [None]
